FAERS Safety Report 16343063 (Version 8)
Quarter: 2019Q3

REPORT INFORMATION
  Report Type: Report from Study
  Country: CA (occurrence: CA)
  Receive Date: 20190522
  Receipt Date: 20190911
  Transmission Date: 20191004
  Serious: Yes (Hospitalization)
  Sender: FDA-Public Use
  Company Number: PHHY2019CA114514

PATIENT
  Sex: Male

DRUGS (8)
  1. TAFINLAR [Suspect]
     Active Substance: DABRAFENIB MESYLATE
     Dosage: 200 MG, QD
     Route: 048
  2. MEKINIST [Suspect]
     Active Substance: TRAMETINIB DIMETHYL SULFOXIDE
     Indication: METASTATIC MALIGNANT MELANOMA
     Dosage: 2 MG, UNK
     Route: 048
     Dates: start: 20190423
  3. TAFINLAR [Suspect]
     Active Substance: DABRAFENIB MESYLATE
     Indication: METASTATIC MALIGNANT MELANOMA
     Dosage: 300 MG, UNK
     Route: 048
     Dates: start: 20190426
  4. MEKINIST [Suspect]
     Active Substance: TRAMETINIB DIMETHYL SULFOXIDE
     Dosage: 2 MG, QD
     Route: 048
     Dates: start: 20190426
  5. MEKINIST [Suspect]
     Active Substance: TRAMETINIB DIMETHYL SULFOXIDE
     Dosage: 2 MG, UNK
     Route: 048
  6. CITALOPRAM [Suspect]
     Active Substance: CITALOPRAM HYDROBROMIDE
     Indication: PRODUCT USED FOR UNKNOWN INDICATION
     Dosage: UNK
     Route: 065
  7. TAFINLAR [Suspect]
     Active Substance: DABRAFENIB MESYLATE
     Dosage: 300 MG, UNK
     Route: 048
  8. MEKINIST [Suspect]
     Active Substance: TRAMETINIB DIMETHYL SULFOXIDE
     Dosage: 2 MG, UNK
     Route: 048

REACTIONS (17)
  - Abdominal pain [Unknown]
  - Malaise [Unknown]
  - Bladder hypertrophy [Unknown]
  - Delirium [Unknown]
  - Injection site swelling [Unknown]
  - Lymphadenopathy [Unknown]
  - Pyrexia [Recovering/Resolving]
  - Dry skin [Recovering/Resolving]
  - Hepatic enzyme increased [Not Recovered/Not Resolved]
  - Pneumonia [Unknown]
  - Blood pressure decreased [Unknown]
  - Asthenia [Recovering/Resolving]
  - Blood potassium decreased [Unknown]
  - Dehydration [Unknown]
  - Decreased appetite [Unknown]
  - Blood sodium decreased [Unknown]
  - Kidney enlargement [Unknown]
